FAERS Safety Report 14510255 (Version 3)
Quarter: 2018Q1

REPORT INFORMATION
  Report Type: Report from Study
  Country: JP (occurrence: JP)
  Receive Date: 20180209
  Receipt Date: 20180213
  Transmission Date: 20180509
  Serious: Yes (Hospitalization)
  Sender: FDA-Public Use
  Company Number: JP-B.I. PHARMACEUTICALS,INC./RIDGEFIELD-2018-BI-006410

PATIENT
  Age: 79 Year
  Sex: Male
  Weight: 71.5 kg

DRUGS (12)
  1. ATORVASTATIN [Concomitant]
     Active Substance: ATORVASTATIN
     Indication: DYSLIPIDAEMIA
     Route: 048
  2. ETHYL ICOSAPENTATE [Concomitant]
     Active Substance: ICOSAPENT ETHYL
     Indication: DYSLIPIDAEMIA
     Route: 048
  3. SITAGLIPTIN PHOSPHATE MONOHYDRATE [Concomitant]
     Active Substance: SITAGLIPTIN PHOSPHATE
     Indication: TYPE 2 DIABETES MELLITUS
     Route: 048
  4. METFORMIN HYDROCHLORIDE. [Concomitant]
     Active Substance: METFORMIN HYDROCHLORIDE
     Indication: TYPE 2 DIABETES MELLITUS
     Route: 048
  5. CELECOXIB. [Concomitant]
     Active Substance: CELECOXIB
     Indication: ARTHRALGIA
     Route: 048
  6. EPERISONE HYDROCHLORIDE [Concomitant]
     Active Substance: EPERISONE HYDROCHLORIDE
     Indication: ARTHRALGIA
     Route: 048
  7. NICERGOLIN [Concomitant]
     Indication: PROPHYLAXIS
  8. RABEPRAZOLE [Concomitant]
     Active Substance: RABEPRAZOLE
     Indication: GASTRITIS PROPHYLAXIS
     Route: 048
  9. NINTEDANIB [Suspect]
     Active Substance: NINTEDANIB
     Indication: INTERSTITIAL LUNG DISEASE
     Route: 065
     Dates: start: 20170927, end: 20180131
  10. NICERGOLIN [Concomitant]
     Indication: CEREBRAL INFARCTION
     Route: 048
  11. TOCOPHERYL NICOTINATE [Concomitant]
     Active Substance: TOCOPHERYL NICOTINATE, D-.ALPHA.
     Indication: ARTHRALGIA
     Route: 048
  12. REBAMIDE [Concomitant]
     Indication: GASTRITIS PROPHYLAXIS
     Route: 048

REACTIONS (1)
  - Hypoxia [Not Recovered/Not Resolved]

NARRATIVE: CASE EVENT DATE: 20180131
